FAERS Safety Report 23226130 (Version 1)
Quarter: 2023Q4

REPORT INFORMATION
  Report Type: Spontaneous
  Country: US (occurrence: US)
  Receive Date: 20231124
  Receipt Date: 20231124
  Transmission Date: 20240110
  Serious: Yes (Other)
  Sender: FDA-Public Use
  Company Number: US-BRISTOL-MYERS SQUIBB COMPANY-2023-169497

PATIENT
  Age: 87 Year
  Sex: Male

DRUGS (1)
  1. LENALIDOMIDE [Suspect]
     Active Substance: LENALIDOMIDE
     Indication: Polyneuropathy
     Dosage: FREQUENCY: TAKE 1 CAPSULE BY MOUTH EVERY OTHER DAY OF A 28 DAY CYCLE
     Route: 048
     Dates: start: 20230525

REACTIONS (2)
  - Peripheral swelling [Recovered/Resolved]
  - Off label use [Unknown]
